FAERS Safety Report 24594427 (Version 1)
Quarter: 2024Q4

REPORT INFORMATION
  Report Type: Spontaneous
  Country: NL (occurrence: NL)
  Receive Date: 20241108
  Receipt Date: 20241108
  Transmission Date: 20250114
  Serious: Yes (Hospitalization)
  Sender: BAXTER
  Company Number: None

PATIENT
  Age: 53 Year
  Sex: Male

DRUGS (4)
  1. IFOSFAMIDE [Suspect]
     Active Substance: IFOSFAMIDE
     Indication: Seminoma
     Dosage: DOSAGE TEXT: 2400 MG OF IFOSFAMIDE IN 500 ML 0.9% NACL FOR 4 DAYS, DURATION: 4 DAYS
     Route: 065
     Dates: start: 20240830
  2. MESNA [Suspect]
     Active Substance: MESNA
     Dosage: DOSAGE TEXT: SOLUTION FOR INJECTION, 100 MG/ML (MILLIGRAMS PER MILLILITER
     Route: 065
  3. CISPLATIN [Suspect]
     Active Substance: CISPLATIN
     Indication: Seminoma
     Dosage: DOSAGE TEXT: 55 MG CISPLATIN IN 1,000 ML 0.9% NACL FOR 4 DAYS, DURATION: 4 DAYS
     Route: 065
     Dates: start: 20240830
  4. PACLITAXEL [Concomitant]
     Active Substance: PACLITAXEL
     Dosage: DOSAGE TEXT: SOLUTION FOR INFUSION, 6 MG/ML (MILLIGRAMS PER MILLILITER), DURATION: 4 DAYS
     Route: 065

REACTIONS (1)
  - Hyponatraemia [Recovered/Resolved]
